FAERS Safety Report 18556769 (Version 3)
Quarter: 2021Q1

REPORT INFORMATION
  Report Type: Report from Study
  Country: CO (occurrence: CO)
  Receive Date: 20201128
  Receipt Date: 20210331
  Transmission Date: 20210419
  Serious: Yes (Other)
  Sender: FDA-Public Use
  Company Number: NVSC2020CO268426

PATIENT
  Sex: Male

DRUGS (1)
  1. VOTRIENT [Suspect]
     Active Substance: PAZOPANIB HYDROCHLORIDE
     Indication: METASTATIC RENAL CELL CARCINOMA
     Dosage: UNK
     Route: 048

REACTIONS (14)
  - Toxicity to various agents [Unknown]
  - Gastritis [Unknown]
  - Dehydration [Unknown]
  - Nervousness [Unknown]
  - Suicidal ideation [Unknown]
  - Food intolerance [Unknown]
  - Feeling abnormal [Unknown]
  - Neurosis [Unknown]
  - Vomiting [Unknown]
  - Diarrhoea [Unknown]
  - Eating disorder [Unknown]
  - Abdominal discomfort [Unknown]
  - Weight decreased [Unknown]
  - Illness [Unknown]
